FAERS Safety Report 18674538 (Version 1)
Quarter: 2020Q4

REPORT INFORMATION
  Report Type: Spontaneous
  Country: US (occurrence: US)
  Receive Date: 20201228
  Receipt Date: 20201228
  Transmission Date: 20210114
  Serious: Yes (Other)
  Sender: FDA-Public Use
  Company Number: None

PATIENT
  Age: 92 Year
  Sex: Female
  Weight: 58.5 kg

DRUGS (8)
  1. LETROZOLE. [Concomitant]
     Active Substance: LETROZOLE
  2. IBRANCE [Suspect]
     Active Substance: PALBOCICLIB
     Indication: BREAST CANCER
     Route: 048
     Dates: start: 20201105
  3. LORATADINE. [Concomitant]
     Active Substance: LORATADINE
  4. MULTIVITAMIN IRON [Concomitant]
  5. TAMOXIFEN [Concomitant]
     Active Substance: TAMOXIFEN
  6. METOPROLOL. [Concomitant]
     Active Substance: METOPROLOL
  7. CALCIUM [Concomitant]
     Active Substance: CALCIUM
  8. ASPIRIN. [Concomitant]
     Active Substance: ASPIRIN

REACTIONS (3)
  - Diarrhoea [None]
  - Vomiting [None]
  - Dizziness [None]

NARRATIVE: CASE EVENT DATE: 20201228
